FAERS Safety Report 21979922 (Version 1)
Quarter: 2023Q1

REPORT INFORMATION
  Report Type: Spontaneous
  Country: US (occurrence: US)
  Receive Date: 20230210
  Receipt Date: 20230210
  Transmission Date: 20230418
  Serious: Yes (Hospitalization, Other)
  Sender: FDA-Public Use
  Company Number: US-FreseniusKabi-FK202301657

PATIENT
  Age: 37 Year
  Sex: Male
  Weight: 41 kg

DRUGS (7)
  1. LIDOCAINE [Suspect]
     Active Substance: LIDOCAINE
     Indication: Local anaesthesia
  2. MIDAZOLAM [Suspect]
     Active Substance: MIDAZOLAM
     Indication: Anaesthesia
     Route: 042
  3. MIDAZOLAM [Suspect]
     Active Substance: MIDAZOLAM
     Route: 042
  4. MIDAZOLAM [Suspect]
     Active Substance: MIDAZOLAM
     Route: 042
  5. EPINEPHRINE [Suspect]
     Active Substance: EPINEPHRINE
     Indication: Local anaesthesia
  6. ARTICAINE [Suspect]
     Active Substance: ARTICAINE
     Indication: Anaesthesia
  7. FLUMAZENIL [Concomitant]
     Active Substance: FLUMAZENIL
     Indication: Product used for unknown indication

REACTIONS (7)
  - Myotonic dystrophy [Unknown]
  - Facial paralysis [Unknown]
  - Eyelid ptosis [Unknown]
  - Heart rate increased [Unknown]
  - Areflexia [Unknown]
  - Oxygen saturation decreased [Unknown]
  - Muscular weakness [Unknown]
